FAERS Safety Report 10269693 (Version 1)
Quarter: 2014Q2

REPORT INFORMATION
  Report Type: Spontaneous
  Country: US (occurrence: None)
  Receive Date: 20140626
  Receipt Date: 20140626
  Transmission Date: 20141212
  Serious: No
  Sender: FDA-Public Use
  Company Number: None

PATIENT
  Age: 30 Year
  Sex: Male
  Weight: 72.58 kg

DRUGS (1)
  1. FLUPHENAZINE [Suspect]
     Indication: SLEEP DISORDER
     Dosage: 1 TABLET AT BEDTIME TAKEN BY MOUTH
     Route: 048
     Dates: start: 20140620, end: 20140621

REACTIONS (10)
  - Documented hypersensitivity to administered drug [None]
  - Nipple pain [None]
  - Breast discharge [None]
  - Genital disorder male [None]
  - Skin discolouration [None]
  - Cold sweat [None]
  - Rash [None]
  - Cold sweat [None]
  - Burning sensation [None]
  - Pain [None]
